FAERS Safety Report 5900625-8 (Version None)
Quarter: 2008Q3

REPORT INFORMATION
  Report Type: 
  Country: None (occurrence: None)
  Receive Date: 20080926
  Receipt Date: 20080915
  Transmission Date: 20090109
  Serious: Yes (Hospitalization)
  Sender: FDA-Public Use
  Company Number: BR-PFIZER INC-2008078510

PATIENT
  Sex: Female

DRUGS (1)
  1. DETRUSITOL LA [Suspect]
     Indication: HYPERTONIC BLADDER
     Route: 048
     Dates: start: 20080415

REACTIONS (1)
  - GASTROINTESTINAL DISORDER [None]
